FAERS Safety Report 5814684-4 (Version None)
Quarter: 2008Q3

REPORT INFORMATION
  Report Type: 
  Country: None (occurrence: None)
  Receive Date: 20080718
  Receipt Date: 20080414
  Transmission Date: 20090109
  Serious: No
  Sender: FDA-Public Use
  Company Number: US-KINGPHARMUSA00001-K200800449

PATIENT

DRUGS (6)
  1. LEVOXYL [Suspect]
     Indication: HYPOTHYROIDISM
     Dosage: 100 MCG, QD
     Route: 048
  2. LEVOXYL [Suspect]
     Dosage: 100 MCG, QD
     Route: 048
  3. PERCOCET [Concomitant]
     Dosage: 7.5 MG, QID/PRN
  4. FIORICET [Concomitant]
     Indication: HEADACHE
     Dosage: UNK, PRN
  5. TRIAMTEREN [Concomitant]
     Dosage: 37.5 MG, QD
  6. BENICAR [Concomitant]
     Dosage: 40 MG, QD

REACTIONS (4)
  - DYSPHAGIA [None]
  - ORAL DISCOMFORT [None]
  - SENSATION OF FOREIGN BODY [None]
  - THROAT IRRITATION [None]
